FAERS Safety Report 10377277 (Version 2)
Quarter: 2014Q4

REPORT INFORMATION
  Report Type: Spontaneous
  Country: US (occurrence: US)
  Receive Date: 20140812
  Receipt Date: 20141010
  Transmission Date: 20150528
  Serious: Yes (Other)
  Sender: FDA-Public Use
  Company Number: US-BRISTOL-MYERS SQUIBB COMPANY-21266234

PATIENT
  Age: 87 Year
  Sex: Female

DRUGS (2)
  1. COUMADIN [Suspect]
     Active Substance: WARFARIN SODIUM
     Dates: start: 1999, end: 2009
  2. ANTIBIOTICS [Concomitant]
     Active Substance: UNSPECIFIED INGREDIENT

REACTIONS (9)
  - Oedema [Unknown]
  - Tachypnoea [Unknown]
  - Asthenia [Unknown]
  - Blood electrolytes abnormal [Unknown]
  - Hearing impaired [Unknown]
  - Macular degeneration [Unknown]
  - Arthropathy [Unknown]
  - Hyperhidrosis [Unknown]
  - Blindness [Unknown]
